FAERS Safety Report 9475722 (Version 1)
Quarter: 2013Q3

REPORT INFORMATION
  Report Type: Spontaneous
  Country: US (occurrence: US)
  Receive Date: 20130826
  Receipt Date: 20130826
  Transmission Date: 20140515
  Serious: Yes (Hospitalization)
  Sender: FDA-Public Use
  Company Number: US-GENZYME-FABR-1003538

PATIENT
  Sex: Male

DRUGS (5)
  1. FABRAZYME [Suspect]
     Indication: FABRY^S DISEASE
     Dosage: 85 MG, Q2W
     Route: 042
     Dates: start: 20110526
  2. BENADRYL [Concomitant]
     Indication: PREMEDICATION
     Dosage: UNK
     Route: 042
  3. ACETAMINOPHEN [Concomitant]
     Indication: PREMEDICATION
     Dosage: UNK
     Route: 048
  4. LISINOPRIL [Concomitant]
     Indication: PRODUCT USED FOR UNKNOWN INDICATION
     Dosage: UNK
     Route: 065
  5. PLAVIX [Concomitant]
     Indication: PRODUCT USED FOR UNKNOWN INDICATION
     Dosage: UNK
     Route: 065

REACTIONS (1)
  - Ankle deformity [Unknown]
